FAERS Safety Report 4693580-2 (Version None)
Quarter: 2005Q2

REPORT INFORMATION
  Report Type: 
  Country: None (occurrence: None)
  Receive Date: 20050617
  Receipt Date: 20050518
  Transmission Date: 20051028
  Serious: Yes (Other)
  Sender: FDA-Public Use
  Company Number: US-ROCHE-405360

PATIENT
  Age: 67 Year
  Sex: Female
  Weight: 64 kg

DRUGS (4)
  1. BONIVA [Suspect]
     Indication: OSTEOPOROSIS POSTMENOPAUSAL
     Route: 048
     Dates: start: 20050512, end: 20050512
  2. VIVELLE [Concomitant]
     Dosage: STRENGTH 0.0375.
     Dates: start: 19921015
  3. CALCIUM GLUCONATE [Concomitant]
     Route: 048
     Dates: start: 19921015
  4. MULTI-VITAMIN [Concomitant]
     Route: 048

REACTIONS (4)
  - DIARRHOEA [None]
  - NAUSEA [None]
  - PAIN [None]
  - STOMACH DISCOMFORT [None]
